FAERS Safety Report 7686251-1 (Version None)
Quarter: 2011Q3

REPORT INFORMATION
  Report Type: 
  Country: None (occurrence: None)
  Receive Date: 20110816
  Receipt Date: 20100803
  Transmission Date: 20111222
  Serious: No
  Sender: FDA-Public Use
  Company Number: US-GLAXOSMITHKLINE-A0873688A

PATIENT
  Age: 85 Year
  Sex: Female

DRUGS (1)
  1. TAGAMET HB 200 [Suspect]
     Indication: DYSPEPSIA
     Dates: start: 20100803, end: 20100803

REACTIONS (3)
  - SOMNOLENCE [None]
  - DIZZINESS [None]
  - DRY MOUTH [None]
